FAERS Safety Report 5117793-0 (Version None)
Quarter: 2006Q3

REPORT INFORMATION
  Report Type: 
  Country: None (occurrence: None)
  Receive Date: 20060926
  Receipt Date: 20060914
  Transmission Date: 20061208
  Serious: Yes (Hospitalization)
  Sender: FDA-Public Use
  Company Number: 2006-02334

PATIENT
  Age: 77 Year
  Sex: Male
  Weight: 74.5 kg

DRUGS (3)
  1. VELCADE [Suspect]
     Indication: MESOTHELIOMA
     Dates: start: 20060828
  2. DELTACORTRIL [Concomitant]
  3. OMEPRAZOLE [Concomitant]

REACTIONS (1)
  - CHEST DISCOMFORT [None]
